FAERS Safety Report 8571749-4 (Version None)
Quarter: 2012Q3

REPORT INFORMATION
  Report Type: 
  Country: None (occurrence: None)
  Receive Date: 20120806
  Receipt Date: 20120802
  Transmission Date: 20120928
  Serious: Yes (Other)
  Sender: FDA-Public Use
  Company Number: PHHY2012BE067120

PATIENT
  Age: 62 Year
  Sex: Female

DRUGS (1)
  1. FEMARA [Suspect]
     Indication: BREAST CANCER
     Dosage: 2.5 MG, UNK
     Route: 065
     Dates: start: 20120730

REACTIONS (8)
  - NAUSEA [None]
  - CRYING [None]
  - PAIN IN EXTREMITY [None]
  - INSOMNIA [None]
  - ABDOMINAL PAIN [None]
  - ARTHRALGIA [None]
  - RESTLESSNESS [None]
  - FATIGUE [None]
